FAERS Safety Report 10450971 (Version 1)
Quarter: 2014Q3

REPORT INFORMATION
  Report Type: Spontaneous
  Country: FR (occurrence: FR)
  Receive Date: 20140912
  Receipt Date: 20140912
  Transmission Date: 20150326
  Serious: Yes (Hospitalization, Other)
  Sender: FDA-Public Use
  Company Number: FR-PFIZER INC-2014250545

PATIENT
  Age: 51 Year
  Sex: Female

DRUGS (2)
  1. XANAX [Suspect]
     Active Substance: ALPRAZOLAM
     Dosage: 7.5 MG (30 DF), SINGLE
     Route: 048
     Dates: start: 20140725, end: 20140725
  2. SEROPLEX [Suspect]
     Active Substance: ESCITALOPRAM OXALATE
     Dosage: 280 MG (28 DF), SINGLE
     Route: 048
     Dates: start: 20140725, end: 20140725

REACTIONS (8)
  - Pneumonia aspiration [Unknown]
  - Toxicity to various agents [Unknown]
  - Hypotonia [Unknown]
  - Fall [Recovered/Resolved]
  - Hypotension [Recovered/Resolved]
  - Head injury [Unknown]
  - Aggression [Unknown]
  - Agitation [Unknown]

NARRATIVE: CASE EVENT DATE: 2014
